FAERS Safety Report 16769141 (Version 1)
Quarter: 2019Q3

REPORT INFORMATION
  Report Type: Report from Study
  Country: FR (occurrence: FR)
  Receive Date: 20190903
  Receipt Date: 20190903
  Transmission Date: 20191005
  Serious: Yes (Congenital Anomaly)
  Sender: FDA-Public Use
  Company Number: FR-UCBSA-2019037140

PATIENT

DRUGS (1)
  1. LEVETIRACETAM. [Suspect]
     Active Substance: LEVETIRACETAM
     Indication: PRODUCT USED FOR UNKNOWN INDICATION
     Dosage: UNK
     Route: 064

REACTIONS (8)
  - Ventricular septal defect [Unknown]
  - Cleft lip [Unknown]
  - Maternal exposure during pregnancy [Unknown]
  - Coarctation of the aorta [Unknown]
  - Talipes [Unknown]
  - Craniosynostosis [Unknown]
  - Atrial septal defect [Unknown]
  - Hypoplastic left heart syndrome [Unknown]
